FAERS Safety Report 5618830-7 (Version None)
Quarter: 2008Q1

REPORT INFORMATION
  Report Type: 
  Country: None (occurrence: None)
  Receive Date: 20080207
  Receipt Date: 20080128
  Transmission Date: 20080703
  Serious: Yes (Hospitalization)
  Sender: FDA-Public Use
  Company Number: DE-ELI_LILLY_AND_COMPANY-DE200801006163

PATIENT
  Age: 72 Year
  Sex: Female

DRUGS (5)
  1. FORTEO [Suspect]
     Indication: OSTEOPOROSIS
     Dosage: 20 UG, DAILY (1/D)
     Route: 058
     Dates: start: 20070202
  2. CALCIUM CARBONATE + VITAMIN D [Concomitant]
     Dosage: UNK, DAILY (1/D)
     Route: 048
  3. IBUDOLOR [Concomitant]
  4. L-THYROXINE [Concomitant]
  5. ASPIRIN [Concomitant]

REACTIONS (1)
  - THROMBOSIS [None]
